FAERS Safety Report 6819991-4 (Version None)
Quarter: 2010Q3

REPORT INFORMATION
  Report Type: 
  Country: None (occurrence: None)
  Receive Date: 20100707
  Receipt Date: 20100702
  Transmission Date: 20110219
  Serious: Yes (Life-Threatening, Hospitalization)
  Sender: FDA-Public Use
  Company Number: FR-ROCHE-713278

PATIENT
  Sex: Female

DRUGS (4)
  1. RIVOTRIL [Suspect]
     Indication: PAIN
     Route: 048
     Dates: start: 20080801
  2. MONO-TILDIEM LP [Suspect]
     Indication: HYPERTENSION
     Route: 048
     Dates: start: 20100614, end: 20100621
  3. KARDEGIC [Suspect]
     Indication: PRODUCT USED FOR UNKNOWN INDICATION
     Dosage: 1 DOSE FORM DAILY
     Route: 048
     Dates: start: 20070901
  4. IPERTEN [Concomitant]

REACTIONS (7)
  - BURNING SENSATION [None]
  - ENANTHEMA [None]
  - HYPOTENSION [None]
  - OLIGURIA [None]
  - SEPSIS [None]
  - TACHYCARDIA [None]
  - TOXIC EPIDERMAL NECROLYSIS [None]
